FAERS Safety Report 7118856-0 (Version None)
Quarter: 2010Q4

REPORT INFORMATION
  Report Type: 
  Country: None (occurrence: None)
  Receive Date: 20101123
  Receipt Date: 20100816
  Transmission Date: 20110411
  Serious: No
  Sender: FDA-Public Use
  Company Number: US-KINGPHARMUSA00001-K201001040

PATIENT
  Sex: Female

DRUGS (5)
  1. FLECTOR [Suspect]
     Indication: PAIN IN EXTREMITY
     Dosage: 1 PATCH, TWICE
     Route: 061
     Dates: start: 20090101, end: 20090101
  2. FLECTOR [Suspect]
     Indication: LIMB CRUSHING INJURY
  3. LIPITOR [Concomitant]
     Indication: BLOOD CHOLESTEROL INCREASED
     Dosage: 20 MG, QD
  4. HYDROCHLOROTHIAZIDE [Concomitant]
     Indication: HYPERTENSION
     Dosage: 125 MG, QD
  5. AMLODIPINE [Concomitant]
     Indication: HYPERTENSION
     Dosage: 5 MG, QD

REACTIONS (2)
  - APPLICATION SITE ERYTHEMA [None]
  - APPLICATION SITE PRURITUS [None]
